FAERS Safety Report 22022440 (Version 2)
Quarter: 2023Q1

REPORT INFORMATION
  Report Type: Spontaneous
  Country: US (occurrence: US)
  Receive Date: 20230222
  Receipt Date: 20230315
  Transmission Date: 20230417
  Serious: No
  Sender: FDA-Public Use
  Company Number: US-BRISTOL-MYERS SQUIBB COMPANY-2023-025848

PATIENT
  Age: 60 Year
  Sex: Male

DRUGS (2)
  1. POMALYST [Suspect]
     Active Substance: POMALIDOMIDE
     Indication: Plasma cell myeloma
     Dosage: FREQ: 1-21 DAYS
     Route: 048
     Dates: start: 20200421
  2. XPOVIO PAK [Concomitant]
     Indication: Product used for unknown indication

REACTIONS (3)
  - Pruritus [Unknown]
  - Fatigue [Unknown]
  - Taste disorder [Not Recovered/Not Resolved]
